FAERS Safety Report 10264454 (Version 1)
Quarter: 2014Q2

REPORT INFORMATION
  Report Type: Spontaneous
  Country: US (occurrence: None)
  Receive Date: 20140623
  Receipt Date: 20140623
  Transmission Date: 20141212
  Serious: Yes (Disabling, Other)
  Sender: FDA-Public Use
  Company Number: None

PATIENT
  Age: 67 Year
  Sex: Female
  Weight: 61.69 kg

DRUGS (1)
  1. PROLIA [Suspect]
     Indication: OSTEOPOROSIS
     Dosage: EVERY 6 MONTHS, SUBCUTANEOUS.
     Dates: start: 20140425

REACTIONS (18)
  - Activities of daily living impaired [None]
  - Feeling abnormal [None]
  - Dyspnoea [None]
  - Asthenia [None]
  - Pain [None]
  - Swelling face [None]
  - Constipation [None]
  - Myalgia [None]
  - Pain in extremity [None]
  - Chest discomfort [None]
  - Gingivitis [None]
  - Nasopharyngitis [None]
  - Chills [None]
  - Dry skin [None]
  - Mood swings [None]
  - Insomnia [None]
  - Hypotension [None]
  - Anger [None]
